FAERS Safety Report 9337745 (Version 1)
Quarter: 2013Q2

REPORT INFORMATION
  Report Type: Spontaneous
  Country: US (occurrence: US)
  Receive Date: 20130607
  Receipt Date: 20130607
  Transmission Date: 20140414
  Serious: Yes (Hospitalization, Other)
  Sender: FDA-Public Use
  Company Number: US-UCBSA-087355

PATIENT
  Age: 14 Year
  Sex: Female

DRUGS (7)
  1. VIMPAT [Suspect]
     Dosage: UNKNOWN DOSE
     Route: 042
     Dates: start: 20130523
  2. PEPCID [Concomitant]
     Dosage: UNKNOWN DOSE
  3. LAMICTAL [Concomitant]
     Dosage: UNKNOWN DOSE
  4. LORAZEPAM [Concomitant]
     Dosage: FREQUENCY: AS NEEDED
  5. NORMAL SALINE [Concomitant]
     Dosage: IV HYDRATION
     Route: 042
  6. SODIUM ACETATE [Concomitant]
     Dosage: UNKNOWN
  7. IBUPROFEN [Concomitant]
     Dosage: UNKNOWN DOSE

REACTIONS (3)
  - Cardiac arrest [Recovering/Resolving]
  - Coma [Not Recovered/Not Resolved]
  - Convulsion [Not Recovered/Not Resolved]
